FAERS Safety Report 15365507 (Version 1)
Quarter: 2018Q3

REPORT INFORMATION
  Report Type: Spontaneous
  Country: US (occurrence: US)
  Receive Date: 20180831
  Receipt Date: 20180831
  Transmission Date: 20181010
  Serious: Yes (Hospitalization)
  Sender: FDA-Public Use
  Company Number: None

PATIENT
  Age: 70 Year
  Sex: Female
  Weight: 62.5 kg

DRUGS (2)
  1. 177LU?DOTA0?TYR3?OCTREOTATE [Suspect]
     Active Substance: LUTETIUM OXODOTREOTIDE LU-177
     Indication: NEUROENDOCRINE TUMOUR OF THE LUNG
     Dosage: OTHER FREQUENCY:EVERY 8 WEEKS;?
     Route: 042
     Dates: start: 20180816
  2. NIVOLUMAB, 240 MG [Suspect]
     Active Substance: NIVOLUMAB
     Indication: NEUROENDOCRINE TUMOUR OF THE LUNG
     Dosage: ?          OTHER FREQUENCY:EVERY 2 WEEKS;?
     Route: 042
     Dates: start: 20180802

REACTIONS (5)
  - Cholangitis [None]
  - Vomiting [None]
  - Abdominal pain upper [None]
  - Pyrexia [None]
  - Malaise [None]

NARRATIVE: CASE EVENT DATE: 20180830
